FAERS Safety Report 10042014 (Version 1)
Quarter: 2014Q1

REPORT INFORMATION
  Report Type: Spontaneous
  Country: US (occurrence: US)
  Receive Date: 20140327
  Receipt Date: 20140327
  Transmission Date: 20141002
  Serious: Yes (Other)
  Sender: FDA-Public Use
  Company Number: US-BRISTOL-MYERS SQUIBB COMPANY-20496469

PATIENT
  Age: 89 Year
  Sex: Female

DRUGS (3)
  1. ELIQUIS [Suspect]
  2. WARFARIN SODIUM [Suspect]
  3. CLOPIDOGREL BISULFATE [Suspect]

REACTIONS (1)
  - Cardiac disorder [Unknown]
